FAERS Safety Report 17833928 (Version 1)
Quarter: 2020Q2

REPORT INFORMATION
  Report Type: Spontaneous
  Country: US (occurrence: US)
  Receive Date: 20200528
  Receipt Date: 20200528
  Transmission Date: 20200714
  Serious: Yes (Disabling)
  Sender: FDA-Public Use
  Company Number: None

PATIENT
  Age: 19 Year
  Sex: Female
  Weight: 113.4 kg

DRUGS (2)
  1. NEXPLANON [Suspect]
     Active Substance: ETONOGESTREL
     Dates: start: 20181020, end: 20200513
  2. BUPROPION. [Concomitant]
     Active Substance: BUPROPION

REACTIONS (5)
  - Hyperthyroidism [None]
  - Back pain [None]
  - Hypertension [None]
  - Weight increased [None]
  - Muscular weakness [None]
